FAERS Safety Report 18320303 (Version 22)
Quarter: 2024Q1

REPORT INFORMATION
  Report Type: Spontaneous
  Country: NL (occurrence: NL)
  Receive Date: 20200929
  Receipt Date: 20240104
  Transmission Date: 20240410
  Serious: Yes (Hospitalization, Other)
  Sender: FDA-Public Use
  Company Number: NL-GILEAD-2020-0488864

PATIENT
  Age: 66 Year
  Sex: Male
  Weight: 75.7 kg

DRUGS (95)
  1. DEXAMETHASONE [Suspect]
     Active Substance: DEXAMETHASONE
     Indication: Product used for unknown indication
     Dosage: 40 MILLIGRAM, ONCE A DAY
     Route: 048
     Dates: start: 20200902, end: 20200904
  2. DEXAMETHASONE [Suspect]
     Active Substance: DEXAMETHASONE
     Dosage: 10 MILLIGRAM, ONCE A DAY
     Route: 042
     Dates: start: 20200922, end: 20200923
  3. DEXAMETHASONE [Suspect]
     Active Substance: DEXAMETHASONE
     Dosage: 10 MILLIGRAM, TWO TIMES A DAY
     Route: 042
     Dates: start: 20200924, end: 20201001
  4. DEXAMETHASONE [Suspect]
     Active Substance: DEXAMETHASONE
     Dosage: 10 MILLIGRAM, FOUR TIMES/DAY
     Route: 048
     Dates: start: 20201001, end: 20201008
  5. DEXAMETHASONE [Suspect]
     Active Substance: DEXAMETHASONE
     Dosage: 10 MILLIGRAM, TWO TIMES A DAY
     Route: 048
     Dates: start: 20201009, end: 20201012
  6. DEXAMETHASONE [Suspect]
     Active Substance: DEXAMETHASONE
     Dosage: 10 MILLIGRAM, ONCE A DAY
     Route: 048
     Dates: start: 20201013, end: 20201016
  7. DEXAMETHASONE [Suspect]
     Active Substance: DEXAMETHASONE
     Dosage: 7.5 MILLIGRAM, ONCE A DAY
     Route: 048
     Dates: start: 20201017, end: 20201019
  8. FLUDARABINE [Suspect]
     Active Substance: FLUDARABINE PHOSPHATE
     Indication: Product used for unknown indication
     Dosage: 40 MILLIGRAM, ONCE A DAY
     Route: 048
     Dates: start: 20200902, end: 20200904
  9. FLUDARABINE [Suspect]
     Active Substance: FLUDARABINE PHOSPHATE
     Dosage: 30 MILLIGRAM (1 TOTAL)
     Route: 042
     Dates: start: 20200910, end: 20200910
  10. FLUDARABINE [Suspect]
     Active Substance: FLUDARABINE PHOSPHATE
     Dosage: 30 MILLIGRAM (1 TOTAL)
     Route: 042
     Dates: start: 20200912, end: 20200912
  11. FLUDARABINE [Suspect]
     Active Substance: FLUDARABINE PHOSPHATE
     Dosage: 10 MILLIGRAM, ONCE A DAY
     Route: 042
     Dates: start: 20200922, end: 20200923
  12. FLUDARABINE [Suspect]
     Active Substance: FLUDARABINE PHOSPHATE
     Dosage: 10 MILLIGRAM, TWO TIMES A DAY
     Route: 042
     Dates: start: 20200924, end: 20201001
  13. FLUDARABINE [Suspect]
     Active Substance: FLUDARABINE PHOSPHATE
     Dosage: 10 MILLIGRAM, TWO TIMES A DAY
     Route: 042
     Dates: start: 20201009, end: 20201012
  14. FLUDARABINE [Suspect]
     Active Substance: FLUDARABINE PHOSPHATE
     Dosage: 10 MILLIGRAM, ONCE A DAY
     Route: 048
     Dates: start: 20201013, end: 20201016
  15. FLUDARABINE [Suspect]
     Active Substance: FLUDARABINE PHOSPHATE
     Dosage: 7.5 MILLIGRAM, ONCE A DAY
     Route: 048
     Dates: start: 20201017, end: 20201019
  16. BREXUCABTAGENE AUTOLEUCEL [Suspect]
     Active Substance: BREXUCABTAGENE AUTOLEUCEL
     Indication: Mantle cell lymphoma
     Dosage: UNK
     Route: 042
     Dates: start: 20200915, end: 20200915
  17. CYCLOPHOSPHAMIDE [Suspect]
     Active Substance: CYCLOPHOSPHAMIDE
     Indication: Product used for unknown indication
     Dosage: 1040 MILLIGRAM (1 TOTAL)
     Route: 065
     Dates: start: 20200910, end: 20200910
  18. CYCLOPHOSPHAMIDE [Suspect]
     Active Substance: CYCLOPHOSPHAMIDE
     Dosage: 1040 MILLIGRAM, ONCE A DAY
     Route: 042
     Dates: start: 20200911, end: 20200912
  19. CYCLOPHOSPHAMIDE [Suspect]
     Active Substance: CYCLOPHOSPHAMIDE
     Dosage: 300 MILLIGRAM 1 TOTAL
     Route: 048
     Dates: start: 20201106, end: 20201106
  20. MESNA [Suspect]
     Active Substance: MESNA
     Indication: Product used for unknown indication
     Dosage: 400 MILLIGRAM, 3 TIMES A DAY
     Route: 042
     Dates: start: 20200910, end: 20200910
  21. MESNA [Suspect]
     Active Substance: MESNA
     Indication: Accidental exposure to product
     Dosage: 400 MILLIGRAM, 3 TIMES A DAY
     Route: 042
     Dates: start: 20200910, end: 20200912
  22. MESNA [Suspect]
     Active Substance: MESNA
     Dosage: 400 MILLIGRAM, 3 TIMES A DAY
     Route: 042
     Dates: start: 20200911, end: 20200912
  23. MESNA [Suspect]
     Active Substance: MESNA
     Dosage: 400 MILLIGRAM, 3 TIMES A DAY
     Route: 042
     Dates: start: 20200912, end: 20200912
  24. MESNA [Suspect]
     Active Substance: MESNA
     Dosage: 1600 MILLIGRAM, TWO TIMES A DAY
     Route: 048
     Dates: start: 20201106, end: 20201108
  25. AXICABTAGENE CILOLEUCEL [Suspect]
     Active Substance: AXICABTAGENE CILOLEUCEL
     Indication: Mantle cell lymphoma refractory
     Dosage: UNK
     Route: 042
     Dates: start: 20200915, end: 20200915
  26. ANIDULAFUNGIN [Concomitant]
     Active Substance: ANIDULAFUNGIN
     Indication: Product used for unknown indication
     Dosage: 100 MILLIGRAM, ONCE A DAY
     Route: 042
     Dates: start: 20200811, end: 20200908
  27. ANIDULAFUNGIN [Concomitant]
     Active Substance: ANIDULAFUNGIN
     Dosage: 20 MILLIGRAM, DAILY
     Route: 065
     Dates: start: 20200902, end: 20200902
  28. ANIDULAFUNGIN [Concomitant]
     Active Substance: ANIDULAFUNGIN
     Dosage: 200 MILLIGRAM, ONCE
     Route: 042
     Dates: start: 20200902, end: 20200902
  29. ANIDULAFUNGIN [Concomitant]
     Active Substance: ANIDULAFUNGIN
     Dosage: 100 MILLIGRAM, ONCE A DAY
     Route: 042
     Dates: start: 20200909, end: 20201010
  30. CARBOPLATIN [Concomitant]
     Active Substance: CARBOPLATIN
     Indication: Product used for unknown indication
     Dosage: UNK
     Route: 065
  31. CARBOPLATIN;CYTARABINE;DEXAMETHASONE;RITUXIMAB [Concomitant]
     Indication: Product used for unknown indication
     Dosage: UNK
     Route: 065
     Dates: start: 20200714
  32. SULFAMETHOXAZOLE\TRIMETHOPRIM [Concomitant]
     Active Substance: SULFAMETHOXAZOLE\TRIMETHOPRIM
     Indication: Product used for unknown indication
     Dosage: 480 MILLIGRAM, ONCE A DAY
     Route: 048
     Dates: start: 20200915
  33. SULFAMETHOXAZOLE\TRIMETHOPRIM [Concomitant]
     Active Substance: SULFAMETHOXAZOLE\TRIMETHOPRIM
     Dosage: 480 MILLIGRAM, ONCE A DAY
     Route: 048
     Dates: start: 20210330
  34. CLEMASTINE [Concomitant]
     Active Substance: CLEMASTINE
     Indication: Product used for unknown indication
     Dosage: 2 MILLIGRAM(1 TOTAL)
     Route: 042
     Dates: start: 20200915
  35. CYTARABINE [Concomitant]
     Active Substance: CYTARABINE
     Indication: Product used for unknown indication
     Dosage: UNK
     Route: 065
  36. ESOMEPRAZOLE [Concomitant]
     Active Substance: ESOMEPRAZOLE
     Indication: Product used for unknown indication
     Dosage: 40 MILLIGRAM, TWO TIMES A DAY
     Route: 048
     Dates: start: 20200819, end: 20200819
  37. ESOMEPRAZOLE [Concomitant]
     Active Substance: ESOMEPRAZOLE
     Dosage: 40 MILLIGRAM, TWO TIMES A DAY
     Route: 048
     Dates: start: 20200902, end: 20200911
  38. ESOMEPRAZOLE [Concomitant]
     Active Substance: ESOMEPRAZOLE
     Dosage: 40 MILLIGRAM, ONCE A DAY
     Route: 048
     Dates: start: 20200912
  39. ESOMEPRAZOLE [Concomitant]
     Active Substance: ESOMEPRAZOLE
     Dosage: 40 MILLIGRAM, ONCE A DAY
     Route: 048
     Dates: start: 20210330, end: 20210331
  40. FENTANYL [Concomitant]
     Active Substance: FENTANYL\FENTANYL CITRATE
     Indication: Product used for unknown indication
     Dosage: 12 MICROGRAM, EVERY HOUR
     Route: 062
     Dates: start: 20200813, end: 20200817
  41. FENTANYL [Concomitant]
     Active Substance: FENTANYL\FENTANYL CITRATE
     Dosage: 100 MICROGRAM, TOTAL
     Route: 060
     Dates: start: 20201009, end: 20201009
  42. FENTANYL [Concomitant]
     Active Substance: FENTANYL\FENTANYL CITRATE
     Dosage: 100 MICROGRAM, TOTAL
     Route: 060
     Dates: start: 20201022, end: 20201022
  43. FENTANYL [Concomitant]
     Active Substance: FENTANYL\FENTANYL CITRATE
     Dosage: 100 MILLIGRAM, 3 TIMES A DAY
     Route: 060
     Dates: start: 20201207, end: 20210104
  44. FUROSEMIDE [Concomitant]
     Active Substance: FUROSEMIDE
     Indication: Fluid retention
     Dosage: UNK
     Route: 065
     Dates: start: 20200910, end: 20200911
  45. FUROSEMIDE [Concomitant]
     Active Substance: FUROSEMIDE
     Dosage: 20 MILLIGRAM TOTAL
     Route: 042
     Dates: start: 20200912, end: 20200912
  46. FUROSEMIDE [Concomitant]
     Active Substance: FUROSEMIDE
     Dosage: 20 MILLIGRAM, TWO TIMES A DAY
     Route: 065
     Dates: start: 20200920
  47. HYPROMELLOSES [Concomitant]
     Active Substance: HYPROMELLOSES
     Indication: Lacrimation increased
     Dosage: UNK
     Route: 065
  48. IBRUTINIB [Concomitant]
     Active Substance: IBRUTINIB
     Indication: Product used for unknown indication
     Dosage: 560 MILLIGRAM, ONCE A DAY
     Route: 048
     Dates: start: 20200813, end: 20200818
  49. IBRUTINIB [Concomitant]
     Active Substance: IBRUTINIB
     Dosage: 140 MILLIGRAM, ONCE A DAY
     Route: 048
     Dates: start: 20200819, end: 20200826
  50. IBRUTINIB [Concomitant]
     Active Substance: IBRUTINIB
     Dosage: 140 MILLIGRAM, ONCE A DAY
     Route: 048
     Dates: start: 20200825, end: 20200915
  51. LACTULOSE [Concomitant]
     Active Substance: LACTULOSE
     Indication: Constipation
     Dosage: 10 GRAM, TWO TIMES A DAY
     Route: 048
     Dates: start: 20200826, end: 20200909
  52. LACTULOSE [Concomitant]
     Active Substance: LACTULOSE
     Dosage: 10 GRAM, TWO TIMES A DAY
     Route: 048
     Dates: start: 20200915
  53. METOCLOPRAMIDE [Concomitant]
     Active Substance: METOCLOPRAMIDE
     Indication: Vomiting
     Dosage: 10 MILLIGRAM
     Route: 042
     Dates: start: 20200911, end: 20200911
  54. METOCLOPRAMIDE [Concomitant]
     Active Substance: METOCLOPRAMIDE
     Dosage: 10 MILLIGRAM, TWO TIMES A DAY. PRN
     Route: 042
     Dates: start: 20200916, end: 20200924
  55. METOCLOPRAMIDE [Concomitant]
     Active Substance: METOCLOPRAMIDE
     Dosage: 10 MILLIGRAM, TWO TIMES A DAY
     Route: 042
     Dates: start: 20200909, end: 20200910
  56. METOCLOPRAMIDE [Concomitant]
     Active Substance: METOCLOPRAMIDE
     Dosage: 10 MILLIGRAM, TWO TIMES A DAY
     Route: 048
     Dates: start: 20201009, end: 20201010
  57. METOCLOPRAMIDE [Concomitant]
     Active Substance: METOCLOPRAMIDE
     Dosage: 10 MILLIGRAM, 1 AS NECESSARY
     Route: 042
     Dates: start: 20201113
  58. METOCLOPRAMIDE [Concomitant]
     Active Substance: METOCLOPRAMIDE
     Dosage: 10 MILLIGRAM, ONCE (TOTAL)
     Route: 042
     Dates: start: 20201221, end: 20201221
  59. METOCLOPRAMIDE [Concomitant]
     Active Substance: METOCLOPRAMIDE
     Dosage: 10 MILLIGRAM, 3 TIMES A DAY
     Route: 065
     Dates: start: 20201209
  60. METOCLOPRAMIDE [Concomitant]
     Active Substance: METOCLOPRAMIDE
     Dosage: 10 MILLIGRAM, 1 TOTAL
     Route: 042
     Dates: start: 20210331, end: 20210331
  61. METOCLOPRAMIDE [Concomitant]
     Active Substance: METOCLOPRAMIDE
     Dosage: 10 MILLIGRAM, 1 AS NECESSARY
     Route: 048
     Dates: start: 20210331
  62. MOVICOLON [Concomitant]
     Active Substance: POLYETHYLENE GLYCOL 3350\POTASSIUM CHLORIDE\SODIUM BICARBONATE\SODIUM CHLORIDE
     Indication: Product used for unknown indication
     Dosage: 13.8 GRAM AS NECESSARY
     Route: 048
     Dates: start: 20200921
  63. MOVICOLON [Concomitant]
     Active Substance: POLYETHYLENE GLYCOL 3350\POTASSIUM CHLORIDE\SODIUM BICARBONATE\SODIUM CHLORIDE
     Dosage: 13.8 MILLIGRAM, TWO TIMES A DAY
     Route: 048
     Dates: start: 20201009
  64. NOREPINEPHRINE [Concomitant]
     Active Substance: NOREPINEPHRINE
     Indication: Product used for unknown indication
     Dosage: 0.2 MICROGRAM/KILOGRAM, ONCE A DAY
     Route: 042
     Dates: start: 20201009
  65. ONDANSETRON [Concomitant]
     Active Substance: ONDANSETRON
     Indication: Vomiting
     Dosage: 8 MILLIGRAM, TWO TIMES A DAY
     Route: 065
     Dates: start: 20200910, end: 20200915
  66. ONDANSETRON [Concomitant]
     Active Substance: ONDANSETRON
     Dosage: 8 MILLIGRAM, TWO TIMES A DAY
     Route: 065
     Dates: start: 20200911, end: 20200915
  67. ONDANSETRON [Concomitant]
     Active Substance: ONDANSETRON
     Dosage: 8 MILLIGRAM, TWO TIMES A DAY
     Route: 065
     Dates: start: 20200917
  68. ACETAMINOPHEN [Concomitant]
     Active Substance: ACETAMINOPHEN
     Indication: Product used for unknown indication
     Dosage: 1000 MILLIGRAM, TWO TIMES A DAY
     Route: 048
     Dates: start: 20200801, end: 20200817
  69. ACETAMINOPHEN [Concomitant]
     Active Substance: ACETAMINOPHEN
     Dosage: 1000 MILLIGRAM(1 TOTAL)
     Route: 048
     Dates: start: 20200915, end: 20200915
  70. ACETAMINOPHEN [Concomitant]
     Active Substance: ACETAMINOPHEN
     Dosage: 500 MILLIGRAM, FOUR TIMES/DAY
     Route: 042
     Dates: start: 20200916, end: 20200921
  71. ACETAMINOPHEN [Concomitant]
     Active Substance: ACETAMINOPHEN
     Dosage: 1000 MILLIGRAM, ONCE A DAY
     Route: 048
     Dates: start: 20200922, end: 20200922
  72. ACETAMINOPHEN [Concomitant]
     Active Substance: ACETAMINOPHEN
     Dosage: 500 MILLIGRAM, FOUR TIMES/DAY
     Route: 048
     Dates: start: 20200921, end: 20200923
  73. ACETAMINOPHEN [Concomitant]
     Active Substance: ACETAMINOPHEN
     Dosage: 1000 MILLIGRAM, TWO TIMES A DAY
     Route: 048
     Dates: start: 20201008, end: 20201008
  74. ACETAMINOPHEN [Concomitant]
     Active Substance: ACETAMINOPHEN
     Dosage: 1000 MILLIGRAM, FOUR TIMES/DAY
     Route: 048
     Dates: start: 20201009, end: 20201011
  75. ACETAMINOPHEN [Concomitant]
     Active Substance: ACETAMINOPHEN
     Dosage: 1000 MILLIGRAM, 3 TIMES A DAY
     Route: 042
     Dates: start: 20201009, end: 20201009
  76. ACETAMINOPHEN [Concomitant]
     Active Substance: ACETAMINOPHEN
     Dosage: 1000 MILLIGRAM, 3 TIMES A DAY
     Route: 042
     Dates: start: 20201011, end: 20201027
  77. ACETAMINOPHEN [Concomitant]
     Active Substance: ACETAMINOPHEN
     Dosage: 100 MILLIGRAM
     Route: 042
     Dates: start: 20200916, end: 20200917
  78. ACETAMINOPHEN [Concomitant]
     Active Substance: ACETAMINOPHEN
     Dosage: 1000 MILLIGRAM(1 TOTAL)
     Route: 048
     Dates: start: 20210329, end: 20210329
  79. ACETAMINOPHEN [Concomitant]
     Active Substance: ACETAMINOPHEN
     Dosage: 1000  MILLIGRAM, 1 AS NECESSARY
     Route: 048
     Dates: start: 20210330
  80. HERBALS\PLANTAGO INDICA WHOLE [Concomitant]
     Active Substance: HERBALS\PLANTAGO INDICA WHOLE
     Indication: Constipation
     Dosage: 3.4 GRAM, 3 TIMES A DAY
     Route: 048
     Dates: start: 20200804
  81. HERBALS\PLANTAGO INDICA WHOLE [Concomitant]
     Active Substance: HERBALS\PLANTAGO INDICA WHOLE
     Dosage: 3.4 GRAM, AS NECESSARY
     Route: 048
     Dates: start: 20210409
  82. RASBURICASE [Concomitant]
     Active Substance: RASBURICASE
     Indication: Product used for unknown indication
     Dosage: 3 MILLIGRAM, ONCE A DAY
     Route: 042
     Dates: start: 20200915
  83. RITUXIMAB [Concomitant]
     Active Substance: RITUXIMAB
     Indication: Product used for unknown indication
     Dosage: UNK
     Route: 065
  84. TEMAZEPAM [Concomitant]
     Active Substance: TEMAZEPAM
     Indication: Product used for unknown indication
     Dosage: 10 MILLIGRAM (1 TOTAL)
     Route: 048
     Dates: start: 20200914, end: 20200914
  85. TEMAZEPAM [Concomitant]
     Active Substance: TEMAZEPAM
     Dosage: 10 MILLIGRAM (1 TOTAL)
     Route: 048
     Dates: start: 20200918, end: 20200918
  86. TEMAZEPAM [Concomitant]
     Active Substance: TEMAZEPAM
     Dosage: 10 MILLIGRAM, TWO TIMES A DAY
     Route: 048
     Dates: start: 20200918
  87. VALACYCLOVIR HYDROCHLORIDE [Concomitant]
     Active Substance: VALACYCLOVIR HYDROCHLORIDE
     Indication: Product used for unknown indication
     Dosage: 500 MILLIGRAM, TWO TIMES A DAY
     Route: 048
     Dates: start: 20200825
  88. VALACYCLOVIR HYDROCHLORIDE [Concomitant]
     Active Substance: VALACYCLOVIR HYDROCHLORIDE
     Dosage: 500 MILLIGRAM, TWO TIMES A DAY
     Route: 048
     Dates: start: 20200909
  89. VORICONAZOLE [Concomitant]
     Active Substance: VORICONAZOLE
     Indication: Product used for unknown indication
     Dosage: 338.8 MILLIGRAM, TWO TIMES A DAY
     Route: 042
     Dates: start: 20200811, end: 20200819
  90. VORICONAZOLE [Concomitant]
     Active Substance: VORICONAZOLE
     Dosage: 200 MILLIGRAM, TWO TIMES A DAY
     Route: 042
     Dates: start: 20200819, end: 20200820
  91. VORICONAZOLE [Concomitant]
     Active Substance: VORICONAZOLE
     Dosage: 200 MILLIGRAM, TWO TIMES A DAY
     Route: 048
     Dates: start: 20200825, end: 20200910
  92. VORICONAZOLE [Concomitant]
     Active Substance: VORICONAZOLE
     Dosage: 200 MILLIGRAM, TWO TIMES A DAY
     Route: 042
     Dates: start: 20200825, end: 20201008
  93. VORICONAZOLE [Concomitant]
     Active Substance: VORICONAZOLE
     Dosage: 500 MILLIGRAM, TWO TIMES A DAY
     Route: 042
     Dates: start: 20200909
  94. VORICONAZOLE [Concomitant]
     Active Substance: VORICONAZOLE
     Dosage: 200 MILLIGRAM, TWO TIMES A DAY
     Route: 048
     Dates: start: 20200909, end: 20201010
  95. VORICONAZOLE [Concomitant]
     Active Substance: VORICONAZOLE
     Dosage: 400 MILLIGRAM, ONCE A DAY
     Route: 048
     Dates: start: 20201120, end: 20201120

REACTIONS (24)
  - Neutropenic sepsis [Recovered/Resolved]
  - Pyrexia [Recovered/Resolved]
  - Haemophagocytic lymphohistiocytosis [Recovered/Resolved]
  - Febrile neutropenia [Recovered/Resolved]
  - Delirium [Not Recovered/Not Resolved]
  - Neutropenic sepsis [Recovered/Resolved]
  - Balance disorder [Recovered/Resolved]
  - Tremor [Recovered/Resolved]
  - Aphasia [Recovered/Resolved]
  - Cytokine release syndrome [Recovered/Resolved]
  - Confusional state [Not Recovered/Not Resolved]
  - Accidental exposure to product [Recovered/Resolved]
  - Lacrimation increased [Recovered/Resolved]
  - Fluid retention [Recovered/Resolved]
  - C-reactive protein increased [Not Recovered/Not Resolved]
  - Constipation [Recovered/Resolved]
  - Nausea [Recovered/Resolved]
  - Fall [Recovered/Resolved]
  - Abnormal faeces [Not Recovered/Not Resolved]
  - Vomiting [Not Recovered/Not Resolved]
  - Cough [Not Recovered/Not Resolved]
  - Infection [Unknown]
  - Parainfluenzae virus infection [Not Recovered/Not Resolved]
  - Rhinovirus infection [Not Recovered/Not Resolved]

NARRATIVE: CASE EVENT DATE: 20200728
